FAERS Safety Report 10098549 (Version 1)
Quarter: 2014Q2

REPORT INFORMATION
  Report Type: Spontaneous
  Country: FR (occurrence: FR)
  Receive Date: 20140423
  Receipt Date: 20140423
  Transmission Date: 20141212
  Serious: Yes (Hospitalization)
  Sender: FDA-Public Use
  Company Number: FR-TEVA-476079ISR

PATIENT
  Age: 35 Year
  Sex: Female

DRUGS (5)
  1. LEVOCETIRIZINE RATIOPHARM [Suspect]
     Indication: SEASONAL ALLERGY
     Dosage: 5 MILLIGRAM DAILY; PRECISE SCHEMA: 3 MONTHS PER YEAR, AT THE END OF THE YEAR
     Route: 048
     Dates: start: 20130906, end: 20131218
  2. MIRENA 52 MG/1U BAYER [Suspect]
     Indication: CONTRACEPTION
     Dosage: 20 MICROGRAM DAILY; PREVIOUS INTRAUTERINE DEVICE REMOVED IN OCT-2008
     Route: 015
     Dates: start: 20131002, end: 20131230
  3. DIVARIUS [Suspect]
     Indication: DEPRESSION
     Dosage: 20 MILLIGRAM DAILY; PREVIOUS TREATMENT: 6 TO 8 CONSECUTIVE MONTHS IN 2007
     Route: 048
     Dates: start: 20130906, end: 20131218
  4. PAROXETINE ARROW [Suspect]
     Indication: DEPRESSION
     Dosage: 20 MILLIGRAM DAILY;
     Route: 048
     Dates: start: 20131218, end: 20140206
  5. TIGREAT [Concomitant]
     Dosage: IN CASE OF MIGRAINE ATTACK

REACTIONS (2)
  - Thrombotic thrombocytopenic purpura [Unknown]
  - Microangiopathic haemolytic anaemia [Unknown]
